FAERS Safety Report 22604549 (Version 1)
Quarter: 2023Q2

REPORT INFORMATION
  Report Type: Spontaneous
  Country: US (occurrence: None)
  Receive Date: 20230614
  Receipt Date: 20230614
  Transmission Date: 20230722
  Serious: Yes (Death)
  Sender: FDA-Public Use
  Company Number: None

PATIENT
  Age: 47 Year
  Sex: Female

DRUGS (1)
  1. CYCLOSPORINE [Suspect]
     Active Substance: CYCLOSPORINE
     Indication: Liver transplant
     Dosage: ?25 MG 2 C BID PO
     Route: 048

REACTIONS (5)
  - Metabolic acidosis [None]
  - Lactic acidosis [None]
  - Hyperammonaemia [None]
  - Renal failure [None]
  - Coma [None]

NARRATIVE: CASE EVENT DATE: 20230519
